FAERS Safety Report 8968417 (Version 1)
Quarter: 2012Q4

REPORT INFORMATION
  Report Type: 
  Country: US (occurrence: US)
  Receive Date: 20121218
  Receipt Date: 20121218
  Transmission Date: 20130627
  Serious: No
  Sender: FDA-Public Use
  Company Number: US-BRISTOL-MYERS SQUIBB COMPANY-16370017

PATIENT
  Age: 21 Year
  Sex: Female
  Weight: 55.33 kg

DRUGS (8)
  1. ABILIFY [Suspect]
     Indication: SEASONAL AFFECTIVE DISORDER
     Dosage: Duration: for a week
  2. ABILIFY [Suspect]
     Indication: DEPRESSION
     Dosage: Duration: for a week
  3. ABILIFY [Suspect]
     Indication: ANXIETY DISORDER
     Dosage: Duration: for a week
  4. ABILIFY [Suspect]
     Indication: BIPOLAR DISORDER
     Dosage: Duration: for a week
  5. EFFEXOR [Concomitant]
  6. LAMICTAL [Concomitant]
  7. NEURONTIN [Concomitant]
  8. TRAZODONE HCL [Concomitant]
     Dosage: At night

REACTIONS (1)
  - Sleep disorder [Unknown]
